FAERS Safety Report 22387274 (Version 2)
Quarter: 2023Q2

REPORT INFORMATION
  Report Type: Spontaneous
  Country: US (occurrence: US)
  Receive Date: 20230531
  Receipt Date: 20230621
  Transmission Date: 20230721
  Serious: Yes (Death, Hospitalization)
  Sender: FDA-Public Use
  Company Number: US-ORG100016242-2023000164

PATIENT
  Age: 72 Year
  Sex: Male

DRUGS (1)
  1. ZILRETTA [Suspect]
     Active Substance: TRIAMCINOLONE ACETONIDE
     Indication: Osteoarthritis
     Route: 014
     Dates: start: 20230518, end: 20230518

REACTIONS (4)
  - Adverse drug reaction [Unknown]
  - Abdominal pain upper [Unknown]
  - Death [Fatal]
  - Administration site infection [Unknown]
